FAERS Safety Report 15214014 (Version 4)
Quarter: 2018Q4

REPORT INFORMATION
  Report Type: Spontaneous
  Country: US (occurrence: US)
  Receive Date: 20180730
  Receipt Date: 20181014
  Transmission Date: 20190204
  Serious: No
  Sender: FDA-Public Use
  Company Number: US-JNJFOC-20180720430

PATIENT
  Sex: Female
  Weight: 51.26 kg

DRUGS (2)
  1. IMODIUM A-D [Suspect]
     Active Substance: LOPERAMIDE HYDROCHLORIDE
     Route: 048
  2. IMODIUM A-D [Suspect]
     Active Substance: LOPERAMIDE HYDROCHLORIDE
     Indication: DIARRHOEA
     Dosage: 2 CAPLETS AFTER FIRST BOWEL MOVEMENT AND ONE CAPLET AFTER EACH ONE, AS NEEDED
     Route: 048
     Dates: end: 20180709

REACTIONS (2)
  - Drug ineffective [Unknown]
  - Product use complaint [Unknown]
